FAERS Safety Report 8189756-2 (Version None)
Quarter: 2012Q1

REPORT INFORMATION
  Report Type: 
  Country: None (occurrence: None)
  Receive Date: 20120307
  Receipt Date: 20120228
  Transmission Date: 20120608
  Serious: Yes (Hospitalization)
  Sender: FDA-Public Use
  Company Number: US-BAYER-2011-063738

PATIENT
  Age: 39 Year
  Sex: Female
  Weight: 79.365 kg

DRUGS (4)
  1. YAZ [Suspect]
     Indication: MENSTRUATION IRREGULAR
  2. ZOLOFT [Concomitant]
     Indication: DEPRESSION
     Dosage: UNK
     Dates: start: 20050201
  3. YASMIN [Suspect]
     Indication: MENSTRUATION IRREGULAR
     Dosage: UNK
     Dates: start: 20050201, end: 20080101
  4. NEXIUM [Concomitant]
     Indication: ABDOMINAL DISCOMFORT
     Dosage: UNK
     Dates: start: 20080101

REACTIONS (11)
  - DIARRHOEA [None]
  - SCAR [None]
  - CONSTIPATION [None]
  - MENTAL DISORDER [None]
  - CHOLECYSTECTOMY [None]
  - DYSPEPSIA [None]
  - FLATULENCE [None]
  - EMOTIONAL DISTRESS [None]
  - ABDOMINAL DISTENSION [None]
  - ANXIETY [None]
  - DEPRESSION [None]
